FAERS Safety Report 25557222 (Version 1)
Quarter: 2025Q3

REPORT INFORMATION
  Report Type: Spontaneous
  Country: US (occurrence: US)
  Receive Date: 20250715
  Receipt Date: 20250715
  Transmission Date: 20251021
  Serious: No
  Sender: NOVO NORDISK
  Company Number: US-NOVOPROD-1345672

PATIENT
  Age: 53 Year
  Sex: Female

DRUGS (2)
  1. OZEMPIC [Suspect]
     Active Substance: SEMAGLUTIDE
     Indication: Weight decreased
     Route: 058
     Dates: start: 20240801, end: 20240901
  2. METHAMPHETAMINE [Concomitant]
     Active Substance: METHAMPHETAMINE
     Indication: Product used for unknown indication

REACTIONS (4)
  - Lethargy [Recovered/Resolved]
  - Discouragement [Recovered/Resolved]
  - Somnolence [Recovered/Resolved]
  - Inappropriate schedule of product administration [Recovered/Resolved]
